FAERS Safety Report 9631680 (Version 1)
Quarter: 2013Q4

REPORT INFORMATION
  Report Type: Spontaneous
  Country: JP (occurrence: JP)
  Receive Date: 20131018
  Receipt Date: 20131018
  Transmission Date: 20140711
  Serious: Yes (Hospitalization)
  Sender: FDA-Public Use
  Company Number: JP-EISAI INC-E3810-06723-SPO-JP

PATIENT
  Age: 71 Year
  Sex: Male
  Weight: 80 kg

DRUGS (14)
  1. PARIET (RABEPRAZOLE) [Suspect]
     Indication: GASTRIC ULCER
     Route: 048
     Dates: start: 20130504, end: 20130722
  2. LYRICA [Suspect]
     Indication: DIABETIC NEUROPATHY
     Route: 048
     Dates: start: 20130329, end: 20130722
  3. CRESTOR [Suspect]
     Indication: HYPERLIPIDAEMIA
     Route: 048
     Dates: start: 20120330, end: 20130722
  4. ACTOS [Suspect]
     Indication: DIABETES MELLITUS
     Route: 048
     Dates: start: 20120330, end: 20130722
  5. MEDET [Suspect]
     Indication: DIABETES MELLITUS
     Route: 048
     Dates: start: 20120329, end: 20130722
  6. METHYCOBAL [Concomitant]
     Indication: DIZZINESS
     Route: 048
     Dates: start: 20100212
  7. AMARYL [Concomitant]
     Indication: DIABETES MELLITUS
     Route: 048
     Dates: start: 20120330, end: 20130722
  8. GLACTIV [Concomitant]
     Indication: DIABETES MELLITUS
     Route: 048
     Dates: start: 20120329
  9. NORVASC OD [Concomitant]
     Indication: HYPERTENSION
     Route: 048
     Dates: start: 20120330
  10. BAYASPIRIN [Concomitant]
     Route: 048
     Dates: start: 20120330
  11. NATRIX [Concomitant]
     Route: 048
     Dates: start: 20120330
  12. GOODMAN [Concomitant]
     Indication: INSOMNIA
     Route: 048
     Dates: start: 20120330
  13. ROXEREM [Concomitant]
     Indication: INSOMNIA
     Route: 048
  14. PURSENNID [Concomitant]
     Indication: CONSTIPATION
     Route: 048
     Dates: start: 20120330

REACTIONS (3)
  - Rhabdomyolysis [Recovered/Resolved]
  - Gastroenteritis [Unknown]
  - Diarrhoea [Unknown]
